FAERS Safety Report 17791406 (Version 2)
Quarter: 2020Q3

REPORT INFORMATION
  Report Type: Report from Study
  Country: BR (occurrence: BR)
  Receive Date: 20200515
  Receipt Date: 20200519
  Transmission Date: 20201104
  Serious: Yes (Other)
  Sender: FDA-Public Use
  Company Number: NVSC2020BR131011

PATIENT
  Age: 77 Year
  Sex: Female

DRUGS (1)
  1. ACLASTA [Suspect]
     Active Substance: ZOLEDRONIC ACID
     Indication: PRODUCT USED FOR UNKNOWN INDICATION
     Dosage: (ONCE A YEAR)
     Route: 065

REACTIONS (8)
  - Abdominal pain [Recovered/Resolved]
  - Asthenia [Recovering/Resolving]
  - Metastases to abdominal cavity [Unknown]
  - Malaise [Unknown]
  - Feeling abnormal [Unknown]
  - Gait disturbance [Recovering/Resolving]
  - Ovarian cancer [Unknown]
  - Movement disorder [Recovering/Resolving]

NARRATIVE: CASE EVENT DATE: 20190905
